FAERS Safety Report 9546653 (Version 2)
Quarter: 2014Q1

REPORT INFORMATION
  Report Type: Spontaneous
  Country: US (occurrence: US)
  Receive Date: 20130924
  Receipt Date: 20140116
  Transmission Date: 20141002
  Serious: Yes (Other)
  Sender: FDA-Public Use
  Company Number: US-BIOGENIDEC-2013BI091620

PATIENT
  Age: 57 Year
  Sex: Female

DRUGS (6)
  1. AVONEX [Suspect]
     Indication: MULTIPLE SCLEROSIS
     Route: 030
  2. AVONEX [Suspect]
     Indication: MULTIPLE SCLEROSIS
     Route: 030
     Dates: start: 20070701, end: 2007
  3. AVONEX [Suspect]
     Indication: MULTIPLE SCLEROSIS
     Route: 030
     Dates: start: 20080715
  4. AMPYRA [Concomitant]
     Indication: GAIT DISTURBANCE
     Route: 048
     Dates: end: 20130601
  5. AMPYRA [Concomitant]
     Indication: MULTIPLE SCLEROSIS
     Route: 048
     Dates: end: 20130601
  6. SOLU-MEDROL [Concomitant]
     Indication: MULTIPLE SCLEROSIS
     Route: 042

REACTIONS (13)
  - Arthritis [Not Recovered/Not Resolved]
  - Posture abnormal [Not Recovered/Not Resolved]
  - Gait disturbance [Not Recovered/Not Resolved]
  - Hemiparesis [Not Recovered/Not Resolved]
  - Psoriasis [Recovered/Resolved]
  - Tremor [Not Recovered/Not Resolved]
  - Formication [Recovered/Resolved]
  - Headache [Recovered/Resolved]
  - Muscular weakness [Not Recovered/Not Resolved]
  - Influenza like illness [Recovered/Resolved]
  - Flushing [Recovered/Resolved]
  - Anxiety [Recovered/Resolved]
  - Diarrhoea [Recovered/Resolved]
